FAERS Safety Report 20714016 (Version 1)
Quarter: 2022Q2

REPORT INFORMATION
  Report Type: Spontaneous
  Country: US (occurrence: None)
  Receive Date: 20220414
  Receipt Date: 20220414
  Transmission Date: 20220721
  Serious: Yes (Hospitalization)
  Sender: FDA-Public Use
  Company Number: None

PATIENT
  Sex: Male

DRUGS (8)
  1. GLATIRAMER [Suspect]
     Active Substance: GLATIRAMER
     Indication: Multiple sclerosis
     Dosage: INJECT 1 SYRINGE UNDER THE SKIN (SUBCUTANEOUS INJECTION) THREE TIMES A WEEK AS DIRECTED
     Route: 058
     Dates: start: 20190730
  2. GLIPIZIDE [Concomitant]
     Active Substance: GLIPIZIDE
  3. JARDIANCE [Concomitant]
     Active Substance: EMPAGLIFLOZIN
  4. LASIX [Concomitant]
     Active Substance: FUROSEMIDE
  5. LISINOPRIL [Concomitant]
     Active Substance: LISINOPRIL
  6. METFORMIN [Concomitant]
     Active Substance: METFORMIN HYDROCHLORIDE
  7. PAROXETINE [Concomitant]
     Active Substance: PAROXETINE
  8. PRILOSEC OTC [Concomitant]
     Active Substance: OMEPRAZOLE MAGNESIUM

REACTIONS (1)
  - Product dose omission issue [None]
